FAERS Safety Report 4286413-X (Version None)
Quarter: 2004Q1

REPORT INFORMATION
  Report Type: 
  Country: None (occurrence: None)
  Receive Date: 20040206
  Receipt Date: 20040122
  Transmission Date: 20041129
  Serious: Yes (Other)
  Sender: FDA-Public Use
  Company Number: 200410944GDDC

PATIENT
  Age: 32 Year
  Sex: Female
  Weight: 50 kg

DRUGS (6)
  1. TAXOTERE [Suspect]
     Indication: BREAST CANCER
     Route: 042
     Dates: start: 20031122, end: 20040122
  2. ONDANSETRON [Concomitant]
     Route: 042
     Dates: start: 20031122, end: 20040122
  3. DEXAMETHASONE [Concomitant]
     Route: 042
     Dates: start: 20031122, end: 20040122
  4. CIMETIDINE HCL [Concomitant]
     Route: 042
     Dates: start: 20031122, end: 20040122
  5. DIPHENHYDRAMINE HCL [Concomitant]
     Route: 042
     Dates: start: 20031122, end: 20040122
  6. DOXORUBICIN HCL [Concomitant]
     Indication: BREAST CANCER
     Route: 042
     Dates: start: 20031122, end: 20040122

REACTIONS (5)
  - COUGH [None]
  - CYANOSIS [None]
  - DYSPNOEA [None]
  - HYPERSENSITIVITY [None]
  - OBSTRUCTIVE AIRWAYS DISORDER [None]
